FAERS Safety Report 18935292 (Version 1)
Quarter: 2021Q1

REPORT INFORMATION
  Report Type: Spontaneous
  Country: US (occurrence: US)
  Receive Date: 20210224
  Receipt Date: 20210224
  Transmission Date: 20210420
  Serious: No
  Sender: FDA-Public Use
  Company Number: US-TEVA-2021-US-1882747

PATIENT
  Sex: Female

DRUGS (1)
  1. GLIPIZIDE ACTAVIS [Suspect]
     Active Substance: GLIPIZIDE
     Indication: DIABETES MELLITUS
     Route: 065
     Dates: start: 2018, end: 2018

REACTIONS (5)
  - Contusion [Unknown]
  - Wrong technique in product usage process [Unknown]
  - Increased tendency to bruise [Unknown]
  - Bleeding time prolonged [Unknown]
  - Incorrect dose administered [Unknown]
